FAERS Safety Report 15282797 (Version 2)
Quarter: 2020Q4

REPORT INFORMATION
  Report Type: Other
  Country: CA (occurrence: CA)
  Receive Date: 20180816
  Receipt Date: 20201105
  Transmission Date: 20210113
  Serious: Yes (Other)
  Sender: FDA-Public Use
  Company Number: CA-ROCHE-1886237

PATIENT
  Age: 59 Year
  Sex: Female

DRUGS (24)
  1. AMOXICILLIN. [Concomitant]
     Active Substance: AMOXICILLIN
     Dosage: 14 DAYS JAN 7TH TO JAN 20TH
  2. FOLIC ACID. [Concomitant]
     Active Substance: FOLIC ACID
  3. OXAZEPAM. [Concomitant]
     Active Substance: OXAZEPAM
  4. SYNTHROID [Concomitant]
     Active Substance: LEVOTHYROXINE SODIUM
  5. RITUXAN [Suspect]
     Active Substance: RITUXIMAB
     Indication: RHEUMATOID ARTHRITIS
     Route: 042
     Dates: start: 20140807
  6. DEXILANT [Concomitant]
     Active Substance: DEXLANSOPRAZOLE
  7. SOLU-MEDROL [Concomitant]
     Active Substance: METHYLPREDNISOLONE SODIUM SUCCINATE
     Indication: PREMEDICATION
     Route: 042
     Dates: start: 20140807
  8. RITUXAN [Suspect]
     Active Substance: RITUXIMAB
     Dosage: 9TH INFUSION
     Route: 042
     Dates: start: 20170126
  9. DIPHENHYDRAMINE HCL [Concomitant]
     Active Substance: DIPHENHYDRAMINE HYDROCHLORIDE
     Indication: PREMEDICATION
     Route: 048
     Dates: start: 20140807
  10. ACETAMINOPHEN. [Concomitant]
     Active Substance: ACETAMINOPHEN
     Route: 048
     Dates: start: 20170126
  11. APO MOMETASONE [Concomitant]
     Active Substance: MOMETASONE
     Dosage: X 14 DAYS JAN 7TH TO JAN 20TH
  12. HYDROMORPHONE [Concomitant]
     Active Substance: HYDROMORPHONE
  13. ESTRACE [Concomitant]
     Active Substance: ESTRADIOL
  14. METHOTREXATE. [Concomitant]
     Active Substance: METHOTREXATE
  15. ACETAMINOPHEN. [Concomitant]
     Active Substance: ACETAMINOPHEN
     Indication: PREMEDICATION
     Route: 048
     Dates: start: 20140807
  16. MEDROXY [Concomitant]
     Active Substance: MEDROXYPROGESTERONE ACETATE
  17. PLAQUENIL [Concomitant]
     Active Substance: HYDROXYCHLOROQUINE SULFATE
  18. TYLENOL [Concomitant]
     Active Substance: ACETAMINOPHEN
     Indication: PREMEDICATION
     Route: 048
     Dates: start: 20140807
  19. IRBESARTAN. [Concomitant]
     Active Substance: IRBESARTAN
  20. DIPHENHYDRAMINE HCL [Concomitant]
     Active Substance: DIPHENHYDRAMINE HYDROCHLORIDE
     Route: 048
     Dates: start: 20170126
  21. METHYLPREDNISOLONE. [Concomitant]
     Active Substance: METHYLPREDNISOLONE
     Route: 042
     Dates: start: 20170126
  22. ATORVASTATIN [Concomitant]
     Active Substance: ATORVASTATIN
  23. CALCIUM [Concomitant]
     Active Substance: CALCIUM
  24. METHYLPREDNISOLONE. [Concomitant]
     Active Substance: METHYLPREDNISOLONE
     Indication: PREMEDICATION
     Route: 042
     Dates: start: 20140807

REACTIONS (4)
  - Bedridden [Unknown]
  - Infusion related reaction [Recovered/Resolved]
  - Illness [Unknown]
  - Therapy non-responder [Unknown]

NARRATIVE: CASE EVENT DATE: 20170126
